FAERS Safety Report 4933522-5 (Version None)
Quarter: 2006Q1

REPORT INFORMATION
  Report Type: 
  Country: None (occurrence: None)
  Receive Date: 20060106
  Receipt Date: 20051004
  Transmission Date: 20060701
  Serious: No
  Sender: FDA-Public Use
  Company Number: 200511363BWH

PATIENT
  Age: 60 Year
  Sex: Male

DRUGS (5)
  1. LEVITRA [Suspect]
     Dosage: 20 MG, TOTAL DAILY, ORAL
     Route: 048
  2. CARDURA [Concomitant]
  3. SYNTHROID [Concomitant]
  4. ACIPHEX [Concomitant]
  5. ZETIA [Concomitant]

REACTIONS (2)
  - DIZZINESS [None]
  - FALL [None]
